FAERS Safety Report 8924060 (Version 1)
Quarter: 2012Q4

REPORT INFORMATION
  Report Type: 
  Country: IE (occurrence: IE)
  Receive Date: 20121126
  Receipt Date: 20121126
  Transmission Date: 20130627
  Serious: Yes (Hospitalization, Other)
  Sender: FDA-Public Use
  Company Number: IE-BAYER-2012-120320

PATIENT
  Age: 62 Year
  Sex: Female

DRUGS (1)
  1. NEXAVAR [Suspect]
     Indication: CARCINOMA HEPATOCELLULAR
     Dosage: 200 mg, BID
     Route: 048
     Dates: start: 20121031

REACTIONS (3)
  - Jaundice [None]
  - Confusional state [None]
  - Vomiting [None]
